FAERS Safety Report 25162407 (Version 1)
Quarter: 2025Q2

REPORT INFORMATION
  Report Type: Spontaneous
  Country: US (occurrence: US)
  Receive Date: 20250404
  Receipt Date: 20250404
  Transmission Date: 20250716
  Serious: Yes (Death, Life-Threatening, Other)
  Sender: AMGEN
  Company Number: US-AMGEN-USASP2025061095

PATIENT

DRUGS (15)
  1. CARFILZOMIB [Suspect]
     Active Substance: CARFILZOMIB
     Indication: Plasma cell myeloma refractory
     Route: 065
  2. FILGRASTIM [Suspect]
     Active Substance: FILGRASTIM
     Indication: Neutropenia
     Route: 065
  3. CYCLOPHOSPHAMIDE [Suspect]
     Active Substance: CYCLOPHOSPHAMIDE
     Indication: Lymphodepletion
     Route: 065
  4. CYCLOPHOSPHAMIDE [Suspect]
     Active Substance: CYCLOPHOSPHAMIDE
     Indication: Plasma cell myeloma refractory
  5. DEXAMETHASONE [Suspect]
     Active Substance: DEXAMETHASONE
     Indication: Plasma cell myeloma refractory
     Route: 065
  6. FLUDARABINE [Concomitant]
     Active Substance: FLUDARABINE PHOSPHATE
     Indication: Lymphodepletion
  7. ETOPOSIDE [Concomitant]
     Active Substance: ETOPOSIDE
     Route: 065
  8. CISPLATIN [Concomitant]
     Active Substance: CISPLATIN
  9. DOXORUBICIN [Concomitant]
     Active Substance: DOXORUBICIN
  10. BORTEZOMIB [Concomitant]
     Active Substance: BORTEZOMIB
  11. REVLIMID [Concomitant]
     Active Substance: LENALIDOMIDE
  12. POMALIDOMIDE [Concomitant]
     Active Substance: POMALIDOMIDE
  13. SELINEXOR [Concomitant]
     Active Substance: SELINEXOR
     Route: 065
  14. DARATUMUMAB [Concomitant]
     Active Substance: DARATUMUMAB
  15. ISATUXIMAB [Concomitant]
     Active Substance: ISATUXIMAB
     Indication: Plasma cell myeloma refractory
     Route: 065

REACTIONS (22)
  - Death [Fatal]
  - Sepsis [Fatal]
  - Infection [Unknown]
  - Immune effector cell-associated neurotoxicity syndrome [Unknown]
  - Neurotoxicity [Unknown]
  - Human herpesvirus 6 viraemia [Unknown]
  - Cytopenia [Unknown]
  - JC virus infection [Unknown]
  - Cytokine release syndrome [Unknown]
  - Plasma cell myeloma [Unknown]
  - Cytomegalovirus viraemia [Unknown]
  - Progressive multifocal leukoencephalopathy [Unknown]
  - Clostridium difficile infection [Unknown]
  - Off label use [Unknown]
  - Adenovirus infection [Unknown]
  - Norovirus infection [Unknown]
  - Bacterial infection [Unknown]
  - Lethargy [Unknown]
  - Neutrophil count decreased [Unknown]
  - Haemoglobin decreased [Unknown]
  - Platelet count decreased [Unknown]
  - Therapy partial responder [Unknown]
